FAERS Safety Report 13040626 (Version 1)
Quarter: 2016Q4

REPORT INFORMATION
  Report Type: Spontaneous
  Country: US (occurrence: US)
  Receive Date: 20161219
  Receipt Date: 20161219
  Transmission Date: 20170207
  Serious: No
  Sender: FDA-Public Use
  Company Number: US-MYLANLABS-2016M1008855

PATIENT
  Sex: Female

DRUGS (1)
  1. AMITRIPTYLINE/PERPHENAZINE [Suspect]
     Active Substance: AMITRIPTYLINE\PERPHENAZINE
     Dosage: UNK

REACTIONS (2)
  - Product substitution issue [None]
  - Drug ineffective [Not Recovered/Not Resolved]
